FAERS Safety Report 6969088-8 (Version None)
Quarter: 2010Q3

REPORT INFORMATION
  Report Type: 
  Country: None (occurrence: None)
  Receive Date: 20100907
  Receipt Date: 20100826
  Transmission Date: 20110219
  Serious: Yes (Hospitalization, Disabling)
  Sender: FDA-Public Use
  Company Number: FR-BRISTOL-MYERS SQUIBB COMPANY-15269004

PATIENT
  Age: 75 Year
  Sex: Female

DRUGS (9)
  1. METFORMIN HCL [Suspect]
     Indication: DIABETES MELLITUS
     Route: 048
  2. BISOPROLOL FUMARATE [Suspect]
     Indication: HYPERTENSION
     Dosage: 5MG COATED TABLET
     Route: 048
  3. LEVOTHYROXINE SODIUM [Suspect]
     Indication: HYPOTHYROIDISM
     Dosage: 75MCG TABS
     Route: 048
  4. TAHOR [Suspect]
     Dosage: 40MG COATED TABLET
     Route: 048
     Dates: end: 20100301
  5. XELEVIA [Suspect]
     Indication: DIABETES MELLITUS
     Dosage: 100MG COATED TABLET
     Route: 048
     Dates: start: 20091201, end: 20100301
  6. PARIET [Suspect]
     Indication: GASTROOESOPHAGEAL REFLUX DISEASE
     Dosage: 20MG GASTRO RESISTANT TABLET
     Route: 048
     Dates: end: 20100201
  7. PAROXETINE HCL [Suspect]
     Indication: DEPRESSION
     Dosage: 20MG COATED TABLET
     Route: 048
     Dates: end: 20100101
  8. TAREG [Suspect]
     Indication: HYPERTENSION
     Dosage: 80MG COATED TABLET
     Route: 048
  9. KARDEGIC [Suspect]
     Indication: MYOCARDIAL ISCHAEMIA
     Route: 048

REACTIONS (3)
  - BLOOD CREATINE PHOSPHOKINASE INCREASED [None]
  - MYALGIA [None]
  - RHABDOMYOLYSIS [None]
